FAERS Safety Report 11453606 (Version 1)
Quarter: 2015Q3

REPORT INFORMATION
  Report Type: Spontaneous
  Country: US (occurrence: US)
  Receive Date: 20150831
  Receipt Date: 20150831
  Transmission Date: 20151125
  Serious: No
  Sender: FDA-Public Use
  Company Number: US-ELI_LILLY_AND_COMPANY-US200912004553

PATIENT
  Sex: Male
  Weight: 97.05 kg

DRUGS (12)
  1. CYPROHEPTADINE HYDROCHLORIDE. [Concomitant]
     Active Substance: CYPROHEPTADINE HYDROCHLORIDE
  2. BUPROPION HCL [Concomitant]
     Active Substance: BUPROPION HYDROCHLORIDE
     Dosage: 300 MG, DAILY (1/D)
     Route: 048
  3. MULTIVITAMIN [Concomitant]
     Active Substance: VITAMINS
  4. NIASPAN [Concomitant]
     Active Substance: NIACIN
     Dosage: 1000 MG, EACH EVENING
  5. ROSUVASTATIN [Concomitant]
     Active Substance: ROSUVASTATIN
     Dosage: 20 MG, EACH EVENING
     Route: 048
  6. SULFAMETOXAZOL + TRIMETOPRIMA [Concomitant]
     Dosage: 2 D/F, DAILY (1/D)
     Route: 048
  7. CLOPIDOGREL [Concomitant]
     Active Substance: CLOPIDOGREL BISULFATE
     Dosage: 75 MG, DAILY (1/D)
     Route: 048
  8. CYMBALTA [Suspect]
     Active Substance: DULOXETINE HYDROCHLORIDE
     Route: 048
  9. GLYCERYL TRINITRATE [Concomitant]
     Active Substance: NITROGLYCERIN
     Indication: ANGINA PECTORIS
     Dosage: 0.4 MG, AS NEEDED
     Route: 060
  10. CHONDROITIN SODIUM SULFATE W/GLUCOSAMINE HCL [Concomitant]
  11. NEBIVOLOL HYDROCHLORIDE [Concomitant]
     Active Substance: NEBIVOLOL HYDROCHLORIDE
     Dosage: 10 MG, DAILY (1/D)
     Route: 048
  12. ZEGERID [Concomitant]
     Active Substance: OMEPRAZOLE\SODIUM BICARBONATE
     Dosage: 40 MG, DAILY (1/D)
     Route: 048

REACTIONS (3)
  - Burning sensation [Recovered/Resolved]
  - Flushing [Recovered/Resolved]
  - Hyperhidrosis [Unknown]
